FAERS Safety Report 10035628 (Version 1)
Quarter: 2014Q1

REPORT INFORMATION
  Report Type: Spontaneous
  Country: US (occurrence: None)
  Receive Date: 20140306
  Receipt Date: 20140306
  Transmission Date: 20141002
  Serious: Yes (Hospitalization)
  Sender: FDA-Public Use
  Company Number: 163-21880-12122254

PATIENT
  Age: 79 Year
  Sex: Male

DRUGS (1)
  1. REVLIMID [Suspect]
     Indication: PLASMA CELL MYELOMA
     Dosage: 15 MG, 21 IN 21 D, PO
     Route: 048
     Dates: start: 20120827, end: 20121231

REACTIONS (6)
  - Pneumonia [None]
  - Rhinorrhoea [None]
  - Nasal congestion [None]
  - Cough [None]
  - Increased upper airway secretion [None]
  - Drug dose omission [None]
